FAERS Safety Report 25512428 (Version 2)
Quarter: 2025Q3

REPORT INFORMATION
  Report Type: Spontaneous
  Country: US (occurrence: US)
  Receive Date: 20250703
  Receipt Date: 20250717
  Transmission Date: 20251020
  Serious: No
  Sender: ELI LILLY AND COMPANY
  Company Number: US-ELI_LILLY_AND_COMPANY-US202507001531

PATIENT
  Age: 69 Year
  Sex: Male

DRUGS (40)
  1. MOUNJARO [Suspect]
     Active Substance: TIRZEPATIDE
     Indication: Type 2 diabetes mellitus
     Dosage: 2.5 MG, WEEKLY (1/W)
     Route: 058
     Dates: start: 202502
  2. MOUNJARO [Suspect]
     Active Substance: TIRZEPATIDE
     Indication: Type 2 diabetes mellitus
     Dosage: 2.5 MG, WEEKLY (1/W)
     Route: 058
     Dates: start: 202502
  3. MOUNJARO [Suspect]
     Active Substance: TIRZEPATIDE
     Indication: Type 2 diabetes mellitus
     Dosage: 2.5 MG, WEEKLY (1/W)
     Route: 058
     Dates: start: 202502
  4. MOUNJARO [Suspect]
     Active Substance: TIRZEPATIDE
     Indication: Type 2 diabetes mellitus
     Dosage: 2.5 MG, WEEKLY (1/W)
     Route: 058
     Dates: start: 202502
  5. MOUNJARO [Suspect]
     Active Substance: TIRZEPATIDE
     Indication: Weight control
  6. MOUNJARO [Suspect]
     Active Substance: TIRZEPATIDE
     Indication: Weight control
  7. MOUNJARO [Suspect]
     Active Substance: TIRZEPATIDE
     Indication: Weight control
  8. MOUNJARO [Suspect]
     Active Substance: TIRZEPATIDE
     Indication: Weight control
  9. MOUNJARO [Suspect]
     Active Substance: TIRZEPATIDE
     Indication: Type 2 diabetes mellitus
     Dosage: 5 MG, WEEKLY (1/W)
     Route: 065
  10. MOUNJARO [Suspect]
     Active Substance: TIRZEPATIDE
     Indication: Type 2 diabetes mellitus
     Dosage: 5 MG, WEEKLY (1/W)
     Route: 065
  11. MOUNJARO [Suspect]
     Active Substance: TIRZEPATIDE
     Indication: Type 2 diabetes mellitus
     Dosage: 5 MG, WEEKLY (1/W)
     Route: 065
  12. MOUNJARO [Suspect]
     Active Substance: TIRZEPATIDE
     Indication: Type 2 diabetes mellitus
     Dosage: 5 MG, WEEKLY (1/W)
     Route: 065
  13. MOUNJARO [Suspect]
     Active Substance: TIRZEPATIDE
     Indication: Weight control
  14. MOUNJARO [Suspect]
     Active Substance: TIRZEPATIDE
     Indication: Weight control
  15. MOUNJARO [Suspect]
     Active Substance: TIRZEPATIDE
     Indication: Weight control
  16. MOUNJARO [Suspect]
     Active Substance: TIRZEPATIDE
     Indication: Weight control
  17. MOUNJARO [Suspect]
     Active Substance: TIRZEPATIDE
     Indication: Type 2 diabetes mellitus
     Dosage: 7.5 MG, WEEKLY (1/W)
     Route: 065
  18. MOUNJARO [Suspect]
     Active Substance: TIRZEPATIDE
     Indication: Type 2 diabetes mellitus
     Dosage: 7.5 MG, WEEKLY (1/W)
     Route: 065
  19. MOUNJARO [Suspect]
     Active Substance: TIRZEPATIDE
     Indication: Type 2 diabetes mellitus
     Dosage: 7.5 MG, WEEKLY (1/W)
     Route: 065
  20. MOUNJARO [Suspect]
     Active Substance: TIRZEPATIDE
     Indication: Type 2 diabetes mellitus
     Dosage: 7.5 MG, WEEKLY (1/W)
     Route: 065
  21. MOUNJARO [Suspect]
     Active Substance: TIRZEPATIDE
     Indication: Weight control
  22. MOUNJARO [Suspect]
     Active Substance: TIRZEPATIDE
     Indication: Weight control
  23. MOUNJARO [Suspect]
     Active Substance: TIRZEPATIDE
     Indication: Weight control
  24. MOUNJARO [Suspect]
     Active Substance: TIRZEPATIDE
     Indication: Weight control
  25. MOUNJARO [Suspect]
     Active Substance: TIRZEPATIDE
     Indication: Type 2 diabetes mellitus
     Dosage: 10 MG, WEEKLY (1/W)
     Route: 065
  26. MOUNJARO [Suspect]
     Active Substance: TIRZEPATIDE
     Indication: Type 2 diabetes mellitus
     Dosage: 10 MG, WEEKLY (1/W)
     Route: 065
  27. MOUNJARO [Suspect]
     Active Substance: TIRZEPATIDE
     Indication: Type 2 diabetes mellitus
     Dosage: 10 MG, WEEKLY (1/W)
     Route: 065
  28. MOUNJARO [Suspect]
     Active Substance: TIRZEPATIDE
     Indication: Type 2 diabetes mellitus
     Dosage: 10 MG, WEEKLY (1/W)
     Route: 065
  29. MOUNJARO [Suspect]
     Active Substance: TIRZEPATIDE
     Indication: Weight control
  30. MOUNJARO [Suspect]
     Active Substance: TIRZEPATIDE
     Indication: Weight control
  31. MOUNJARO [Suspect]
     Active Substance: TIRZEPATIDE
     Indication: Weight control
  32. MOUNJARO [Suspect]
     Active Substance: TIRZEPATIDE
     Indication: Weight control
  33. MOUNJARO [Suspect]
     Active Substance: TIRZEPATIDE
     Indication: Type 2 diabetes mellitus
     Route: 065
  34. MOUNJARO [Suspect]
     Active Substance: TIRZEPATIDE
     Indication: Type 2 diabetes mellitus
     Route: 065
  35. MOUNJARO [Suspect]
     Active Substance: TIRZEPATIDE
     Indication: Type 2 diabetes mellitus
     Route: 065
  36. MOUNJARO [Suspect]
     Active Substance: TIRZEPATIDE
     Indication: Type 2 diabetes mellitus
     Route: 065
  37. MOUNJARO [Suspect]
     Active Substance: TIRZEPATIDE
     Indication: Weight control
  38. MOUNJARO [Suspect]
     Active Substance: TIRZEPATIDE
     Indication: Weight control
  39. MOUNJARO [Suspect]
     Active Substance: TIRZEPATIDE
     Indication: Weight control
  40. MOUNJARO [Suspect]
     Active Substance: TIRZEPATIDE
     Indication: Weight control

REACTIONS (6)
  - Pain of skin [Not Recovered/Not Resolved]
  - Feeling cold [Not Recovered/Not Resolved]
  - Sciatica [Recovered/Resolved]
  - Anal incontinence [Not Recovered/Not Resolved]
  - Nausea [Not Recovered/Not Resolved]
  - Pruritus [Not Recovered/Not Resolved]

NARRATIVE: CASE EVENT DATE: 20250201
